FAERS Safety Report 5463064-2 (Version None)
Quarter: 2007Q3

REPORT INFORMATION
  Report Type: 
  Country: None (occurrence: None)
  Receive Date: 20070918
  Receipt Date: 20070918
  Transmission Date: 20080115
  Serious: Yes (Other)
  Sender: FDA-Public Use
  Company Number: None

PATIENT
  Sex: Female
  Weight: 52.6173 kg

DRUGS (1)
  1. KENALOG [Suspect]
     Indication: URTICARIA
     Dosage: ONE SHOT ONE TIME CUTANEOUS
     Route: 003
     Dates: start: 20070716

REACTIONS (4)
  - ANXIETY [None]
  - MENORRHAGIA [None]
  - MENSTRUATION IRREGULAR [None]
  - POLYMENORRHOEA [None]
